FAERS Safety Report 11996680 (Version 3)
Quarter: 2016Q2

REPORT INFORMATION
  Report Type: Report from Study
  Country: JP (occurrence: JP)
  Receive Date: 20160203
  Receipt Date: 20160603
  Transmission Date: 20160815
  Serious: Yes (Hospitalization, Other)
  Sender: FDA-Public Use
  Company Number: JP-B.I. PHARMACEUTICALS,INC./RIDGEFIELD-2016-BI-01132BI

PATIENT
  Age: 52 Year
  Sex: Male
  Weight: 65.1 kg

DRUGS (17)
  1. PREMLEL [Concomitant]
     Indication: NAUSEA
     Dosage: 15 MG
     Route: 048
     Dates: start: 20160217, end: 20160326
  2. FLAGYL [Concomitant]
     Active Substance: METRONIDAZOLE\METRONIDAZOLE HYDROCHLORIDE
     Indication: PNEUMONIA
     Dosage: 1500 MG
     Route: 048
     Dates: start: 20160217, end: 20160302
  3. TIOTROPIUM BROMIDE [Suspect]
     Active Substance: TIOTROPIUM BROMIDE
     Indication: CHRONIC OBSTRUCTIVE PULMONARY DISEASE
     Route: 055
     Dates: start: 20151218, end: 20160108
  4. GASTER [Concomitant]
     Active Substance: FAMOTIDINE
     Indication: RENAL IMPAIRMENT
     Dosage: 20 MG
     Route: 042
     Dates: start: 20160206, end: 20160222
  5. TIOTROPIUM BROMIDE [Suspect]
     Active Substance: TIOTROPIUM BROMIDE
     Indication: CHRONIC OBSTRUCTIVE PULMONARY DISEASE
     Route: 055
     Dates: start: 20151218, end: 20160108
  6. AMBROXOL HYDROCHLORIDE [Concomitant]
     Active Substance: AMBROXOL HYDROCHLORIDE
     Indication: CHRONIC OBSTRUCTIVE PULMONARY DISEASE
     Dosage: 30 MG
     Route: 048
     Dates: start: 20151117
  7. VFEND [Concomitant]
     Active Substance: VORICONAZOLE
     Indication: PNEUMONIA
     Dosage: 400 MG
     Route: 048
     Dates: start: 20160217, end: 20160302
  8. ZYVOX [Concomitant]
     Active Substance: LINEZOLID
     Indication: PNEUMONIA
     Dosage: 1200 MG
     Route: 048
     Dates: start: 20160217, end: 20160302
  9. XYZAL [Concomitant]
     Active Substance: LEVOCETIRIZINE DIHYDROCHLORIDE
     Indication: RHINITIS
     Dosage: 5 MG
     Route: 048
     Dates: start: 20131015
  10. BAKTAR [Concomitant]
     Active Substance: SULFAMETHOXAZOLE\TRIMETHOPRIM
     Indication: PNEUMONIA
     Dosage: 1 ANZ
     Route: 048
     Dates: start: 20160217, end: 20160302
  11. SOLYUGEN [Concomitant]
     Indication: RENAL IMPAIRMENT
     Dosage: 500 ML
     Route: 042
     Dates: start: 20160126
  12. TIOTROPIUM BROMIDE [Suspect]
     Active Substance: TIOTROPIUM BROMIDE
     Route: 055
     Dates: start: 20160123, end: 20160126
  13. UNIPHYL LA [Concomitant]
     Active Substance: THEOPHYLLINE ANHYDROUS
     Indication: CHRONIC OBSTRUCTIVE PULMONARY DISEASE
     Dosage: 400 MG
     Route: 048
     Dates: start: 20131015
  14. LANSOPRAZOLE. [Concomitant]
     Active Substance: LANSOPRAZOLE
     Indication: GASTRITIS PROPHYLAXIS
     Dosage: 15 MG
     Route: 048
     Dates: start: 20160212, end: 20160326
  15. ASTOMIN [Concomitant]
     Active Substance: DIMEMORFAN
     Indication: CHRONIC OBSTRUCTIVE PULMONARY DISEASE
     Dosage: 40 MG
     Route: 048
     Dates: start: 20120605
  16. AVELOX [Concomitant]
     Active Substance: MOXIFLOXACIN HYDROCHLORIDE
     Indication: PNEUMONIA
     Dosage: 400 MG
     Route: 048
     Dates: start: 20160217, end: 20160302
  17. PREDONINE [Concomitant]
     Active Substance: PREDNISOLONE\PREDNISOLONE ACETATE\PREDNISOLONE SODIUM SUCCINATE
     Indication: PNEUMONIA
     Dosage: 30 MG
     Route: 042
     Dates: start: 20160220, end: 20160222

REACTIONS (2)
  - Delirium [Recovered/Resolved]
  - Pneumonia [Recovered/Resolved]

NARRATIVE: CASE EVENT DATE: 20151223
